FAERS Safety Report 12721200 (Version 1)
Quarter: 2016Q3

REPORT INFORMATION
  Report Type: Spontaneous
  Country: US (occurrence: US)
  Receive Date: 20160906
  Receipt Date: 20160906
  Transmission Date: 20161109
  Serious: No
  Sender: FDA-Public Use
  Company Number: None

PATIENT
  Age: 26 Year
  Sex: Female
  Weight: 70.82 kg

DRUGS (3)
  1. TYLENOL [Concomitant]
     Active Substance: ACETAMINOPHEN
  2. NEXPLANON [Suspect]
     Active Substance: ETONOGESTREL
  3. IMPLANON [Suspect]
     Active Substance: ETONOGESTREL
     Route: 058

REACTIONS (2)
  - Menorrhagia [None]
  - Hypoaesthesia [None]

NARRATIVE: CASE EVENT DATE: 20160831
